FAERS Safety Report 4370317-8 (Version None)
Quarter: 2004Q2

REPORT INFORMATION
  Report Type: 
  Country: None (occurrence: None)
  Receive Date: 20040603
  Receipt Date: 20040310
  Transmission Date: 20050107
  Serious: Yes (Other)
  Sender: FDA-Public Use
  Company Number: US-BRISTOL-MYERS SQUIBB COMPANY-12530739

PATIENT
  Age: 22 Year
  Sex: Male

DRUGS (2)
  1. ABILIFY [Suspect]
     Indication: PSYCHOTIC DISORDER
     Route: 048
     Dates: start: 20031126, end: 20040127
  2. PAXIL CR [Concomitant]

REACTIONS (1)
  - HYPERTENSION [None]
